FAERS Safety Report 13243013 (Version 1)
Quarter: 2017Q1

REPORT INFORMATION
  Report Type: Spontaneous
  Country: US (occurrence: US)
  Receive Date: 20170216
  Receipt Date: 20170216
  Transmission Date: 20170428
  Serious: Yes (Death, Hospitalization, Other)
  Sender: FDA-Public Use
  Company Number: US-PFIZER INC-2016067439

PATIENT
  Age: 74 Year
  Sex: Male
  Weight: 109.3 kg

DRUGS (2)
  1. LYRICA [Suspect]
     Active Substance: PREGABALIN
     Indication: DIABETIC NEUROPATHY
     Dosage: 75 MG, 3X/DAY
     Route: 048
     Dates: start: 2015
  2. LYRICA [Suspect]
     Active Substance: PREGABALIN
     Dosage: 75 MG, 2X/DAY
     Route: 048
     Dates: start: 20160120

REACTIONS (8)
  - Renal disorder [Unknown]
  - Localised infection [Not Recovered/Not Resolved]
  - Cardiac disorder [Unknown]
  - Poor peripheral circulation [Fatal]
  - Condition aggravated [Fatal]
  - Gangrene [Fatal]
  - Diabetic complication [Fatal]
  - Drug ineffective [Unknown]

NARRATIVE: CASE EVENT DATE: 20170201
